FAERS Safety Report 17591282 (Version 1)
Quarter: 2020Q1

REPORT INFORMATION
  Report Type: Spontaneous
  Country: US (occurrence: US)
  Receive Date: 20200327
  Receipt Date: 20200327
  Transmission Date: 20200409
  Serious: Yes (Other)
  Sender: FDA-Public Use
  Company Number: US-HORIZON-PRE-0082-2020

PATIENT
  Age: 71 Year
  Sex: Female

DRUGS (1)
  1. RAYOS [Suspect]
     Active Substance: PREDNISONE
     Indication: POLYMYALGIA RHEUMATICA
     Dosage: ONCE AT NIGHT
     Dates: start: 2016

REACTIONS (5)
  - Product dose omission [Unknown]
  - Product container issue [Unknown]
  - Polymyalgia rheumatica [Recovering/Resolving]
  - Expired product administered [Unknown]
  - Product supply issue [Unknown]
